FAERS Safety Report 22781759 (Version 3)
Quarter: 2023Q4

REPORT INFORMATION
  Report Type: Report from Study
  Country: FR (occurrence: FR)
  Receive Date: 20230803
  Receipt Date: 20231030
  Transmission Date: 20240110
  Serious: Yes (Hospitalization, Other)
  Sender: FDA-Public Use
  Company Number: FR-BAXTER-2023BAX026025

PATIENT
  Age: 56 Year
  Sex: Female
  Weight: 43 kg

DRUGS (35)
  1. PREDNISONE [Suspect]
     Active Substance: PREDNISONE
     Indication: Diffuse large B-cell lymphoma
     Dosage: 100 MG, QD, AS APART OF R-CHOP REGIMEN
     Route: 048
     Dates: start: 20230530, end: 20230601
  2. PREDNISONE [Suspect]
     Active Substance: PREDNISONE
     Dosage: 40 MG, QD, AS APART OF R-CHOP REGIMEN
     Route: 048
     Dates: start: 20230602, end: 20230603
  3. PREDNISONE [Suspect]
     Active Substance: PREDNISONE
     Dosage: 100 MG, QD, AS APART OF R-CHOP REGIMEN
     Route: 048
     Dates: start: 20230606
  4. PREDNISONE [Suspect]
     Active Substance: PREDNISONE
     Dosage: 100 MG DAY 1-5 CYCLE 1-6, EVERY 1 DAYS
     Route: 048
     Dates: start: 20230620
  5. RITUXIMAB [Suspect]
     Active Substance: RITUXIMAB
     Indication: Diffuse large B-cell lymphoma
     Dosage: 375 MG/M2, Q3W, AS APART OF R-CHOP REGIMEN
     Route: 042
     Dates: start: 20230530
  6. RITUXIMAB [Suspect]
     Active Substance: RITUXIMAB
     Dosage: 573.75 MILLIGRAM, Q3W
     Route: 042
     Dates: start: 20230620
  7. EPCORITAMAB [Suspect]
     Active Substance: EPCORITAMAB
     Indication: Diffuse large B-cell lymphoma
     Dosage: 0.16 MG, PRIMING DOSE, C1, D1, TOTAL
     Route: 058
     Dates: start: 20230531, end: 20230531
  8. EPCORITAMAB [Suspect]
     Active Substance: EPCORITAMAB
     Dosage: 0.8 MG, TOTAL, INTERMEDIATE DOSE, C1, D8
     Route: 058
     Dates: start: 20230606, end: 20230606
  9. EPCORITAMAB [Suspect]
     Active Substance: EPCORITAMAB
     Dosage: 48 MG, QW, Q1W, FULL DOSE
     Route: 058
     Dates: start: 20230613
  10. CYCLOPHOSPHAMIDE [Suspect]
     Active Substance: CYCLOPHOSPHAMIDE
     Indication: Diffuse large B-cell lymphoma
     Dosage: 750 MG/SQ. METER, Q3W,AS APART OF R-CHO
     Route: 042
     Dates: start: 20230530
  11. CYCLOPHOSPHAMIDE [Suspect]
     Active Substance: CYCLOPHOSPHAMIDE
     Dosage: .5 MILLIGRAM, Q3W
     Route: 042
     Dates: start: 20230620
  12. VINCRISTINE [Suspect]
     Active Substance: VINCRISTINE
     Indication: Diffuse large B-cell lymphoma
     Dosage: 1.4 MG/SQ. METER, Q3W, AS APART
     Route: 042
     Dates: start: 20230530
  13. VINCRISTINE [Suspect]
     Active Substance: VINCRISTINE
     Dosage: 1.92 MILLIGRAM, Q3W
     Route: 042
     Dates: start: 20230620
  14. DOXORUBICIN [Suspect]
     Active Substance: DOXORUBICIN
     Indication: Diffuse large B-cell lymphoma
     Dosage: 50 MG/SQ. METER, Q3W, AS APART OF R
     Route: 042
     Dates: start: 20230530
  15. DOXORUBICIN [Suspect]
     Active Substance: DOXORUBICIN
     Dosage: 68.5 MILLIGRAM, Q3W
     Route: 042
     Dates: start: 20230620
  16. ACETAMINOPHEN [Concomitant]
     Active Substance: ACETAMINOPHEN
     Indication: Cytokine release syndrome
     Dosage: 1000 MILLIGRAM, Q3W
     Route: 065
     Dates: start: 20230530
  17. ACETAMINOPHEN [Concomitant]
     Active Substance: ACETAMINOPHEN
     Indication: Immune effector cell-associated neurotoxicity syndrome
     Dosage: 1000 MILLIGRAM, PRN
     Route: 065
     Dates: start: 20230606, end: 20230630
  18. ACETAMINOPHEN [Concomitant]
     Active Substance: ACETAMINOPHEN
     Indication: Premedication
  19. AMOXICILLIN [Concomitant]
     Active Substance: AMOXICILLIN
     Indication: Prophylaxis
     Dosage: 1 DF, QD, 1 DOSAGE FORM(DOSE FOR
     Route: 065
     Dates: start: 20230530, end: 20230605
  20. ATOVAQUONE [Concomitant]
     Active Substance: ATOVAQUONE
     Indication: Infection prophylaxis
     Dosage: 5 MILLILITER, BID
     Route: 065
     Dates: start: 20230530
  21. PANTOPRAZOLE [Concomitant]
     Active Substance: PANTOPRAZOLE
     Indication: Gastrooesophageal reflux prophylaxis
     Dosage: 40 MILLIGRAM, BID
     Route: 065
     Dates: start: 20230522
  22. POLARAMINE [Concomitant]
     Active Substance: DEXCHLORPHENIRAMINE MALEATE
     Indication: Cytokine release syndrome
     Dosage: UNK , PRN
     Route: 065
     Dates: start: 20230530, end: 20230627
  23. POLARAMINE [Concomitant]
     Active Substance: DEXCHLORPHENIRAMINE MALEATE
     Indication: Immune effector cell-associated neurotoxicity syndrome
     Dosage: 5 MILLIGRAM, Q3W
     Route: 065
     Dates: start: 20230530
  24. POLARAMINE [Concomitant]
     Active Substance: DEXCHLORPHENIRAMINE MALEATE
     Indication: Premedication
  25. SODIUM BICARBONATE [Concomitant]
     Active Substance: SODIUM BICARBONATE
     Indication: Prophylaxis
     Dosage: UNK , 6 U, 6 PER DAY  QD
     Route: 065
     Dates: start: 20230530
  26. VALACYCLOVIR HYDROCHLORIDE [Concomitant]
     Active Substance: VALACYCLOVIR HYDROCHLORIDE
     Indication: Infection prophylaxis
     Dosage: 500 MILLIGRAM, BID
     Route: 065
     Dates: start: 20230530
  27. FILGRASTIM [Concomitant]
     Active Substance: FILGRASTIM
     Indication: Prophylaxis
     Dosage: 30000 INTERNATIONAL UNIT, QD
     Route: 065
     Dates: start: 20230604, end: 20230609
  28. FILGRASTIM [Concomitant]
     Active Substance: FILGRASTIM
     Dosage: 30000 INTERNATIONAL UNIT, QD
     Route: 065
     Dates: start: 20230625, end: 20230628
  29. POTASSIUM CHLORIDE [Concomitant]
     Active Substance: POTASSIUM CHLORIDE
     Indication: Hypokalaemia
     Dosage: 5 DOSAGE FORM, ONCE
     Route: 065
     Dates: start: 20230630, end: 20230630
  30. POTASSIUM CHLORIDE [Concomitant]
     Active Substance: POTASSIUM CHLORIDE
     Dosage: 4 DOSAGE FORM, QD
     Route: 065
     Dates: start: 20230701, end: 20230702
  31. PIPERACILLIN SODIUM [Concomitant]
     Active Substance: PIPERACILLIN SODIUM
     Indication: Infection prophylaxis
     Dosage: 8 GRAM, ONCE
     Route: 065
     Dates: start: 20230629, end: 20230629
  32. PIPERACILLIN SODIUM [Concomitant]
     Active Substance: PIPERACILLIN SODIUM
     Dosage: 8 GRAM, BID
     Route: 065
     Dates: start: 20230630, end: 20230630
  33. PIPERACILLIN SODIUM [Concomitant]
     Active Substance: PIPERACILLIN SODIUM
     Dosage: 4 GRAM, BID
     Route: 065
     Dates: start: 20230701
  34. CEFOTAXIME [Concomitant]
     Active Substance: CEFOTAXIME SODIUM
     Indication: Infection prophylaxis
     Dosage: 2 GRAM, BID
     Route: 065
     Dates: start: 20230629, end: 20230629
  35. FUNGIZONE [Concomitant]
     Active Substance: AMPHOTERICIN B
     Indication: Prophylaxis
     Dosage: UNK, 3 TID
     Route: 065
     Dates: start: 20230620

REACTIONS (3)
  - Febrile bone marrow aplasia [Recovered/Resolved]
  - Febrile neutropenia [Recovered/Resolved]
  - Off label use [Unknown]

NARRATIVE: CASE EVENT DATE: 20230628
